FAERS Safety Report 8455091-8 (Version None)
Quarter: 2012Q2

REPORT INFORMATION
  Report Type: 
  Country: None (occurrence: None)
  Receive Date: 20120621
  Receipt Date: 20120618
  Transmission Date: 20120825
  Serious: Yes (Other)
  Sender: FDA-Public Use
  Company Number: US-PFIZER INC-2012080366

PATIENT
  Sex: Male

DRUGS (3)
  1. ALPRAZOLAM [Concomitant]
     Indication: ANXIETY
     Dosage: UNK
     Dates: start: 20040101
  2. ZOLOFT [Concomitant]
     Indication: DEPRESSION
     Dosage: UNK
     Dates: start: 20040101
  3. CHANTIX [Suspect]
     Indication: SMOKING CESSATION THERAPY
     Dosage: 1 MG, UNK
     Dates: start: 20080125, end: 20080301

REACTIONS (5)
  - DEPRESSION [None]
  - INSOMNIA [None]
  - NIGHTMARE [None]
  - ANXIETY [None]
  - SUICIDAL BEHAVIOUR [None]
